FAERS Safety Report 6759514-1 (Version None)
Quarter: 2010Q2

REPORT INFORMATION
  Report Type: 
  Country: None (occurrence: None)
  Receive Date: 20100603
  Receipt Date: 20100519
  Transmission Date: 20101027
  Serious: Yes (Death, Hospitalization)
  Sender: FDA-Public Use
  Company Number: 2010AL002577

PATIENT
  Age: 7 Year
  Sex: Male

DRUGS (4)
  1. DICLOFENAC SODIUM [Suspect]
     Indication: PAIN
     Dosage: 25 MG;TID;
     Dates: start: 20091106
  2. INFLUVAC [Concomitant]
  3. FOCETRIA [Concomitant]
  4. TAMIFLU [Concomitant]

REACTIONS (4)
  - ABASIA [None]
  - ACUTE LYMPHOCYTIC LEUKAEMIA [None]
  - ARTHRITIS REACTIVE [None]
  - H1N1 INFLUENZA [None]
